FAERS Safety Report 7576298-8 (Version None)
Quarter: 2011Q2

REPORT INFORMATION
  Report Type: 
  Country: None (occurrence: None)
  Receive Date: 20110628
  Receipt Date: 20110128
  Transmission Date: 20111010
  Serious: Yes (Hospitalization, Other)
  Sender: FDA-Public Use
  Company Number: US-BAYER-201040530NA

PATIENT
  Age: 31 Year
  Sex: Female
  Weight: 92.971 kg

DRUGS (17)
  1. YASMIN [Suspect]
     Indication: ACNE
     Dosage: UNK
     Dates: start: 20030101, end: 20040101
  2. DROSPIRENONE AND ETHINYL ESTRADIOL [Suspect]
     Indication: ACNE
     Dosage: UNK
     Dates: start: 20030101, end: 20040101
  3. FLAGYL [Concomitant]
  4. BC POWDER [Concomitant]
     Dosage: UNK
     Dates: start: 20030101, end: 20040101
  5. ADVIL LIQUI-GELS [Concomitant]
     Dosage: UNK UNK, Q4HR
  6. PROTONIX [Concomitant]
  7. YAZ [Suspect]
     Indication: ACNE
     Dosage: UNK
     Dates: start: 20030101, end: 20040101
  8. DROSPIRENONE AND ETHINYL ESTRADIOL [Suspect]
     Indication: MENSTRUATION IRREGULAR
  9. PROMETHAZINE [Concomitant]
  10. ACETAMINOPHEN [Concomitant]
     Dosage: UNK UNK, QID
     Dates: start: 20030101, end: 20040101
  11. IBUPROFEN [Concomitant]
     Dosage: UNK UNK, Q3HR
     Dates: start: 20030101, end: 20040101
  12. YAZ [Suspect]
     Indication: MENSTRUATION IRREGULAR
  13. DARVOCET [Concomitant]
  14. ADVAIR DISKUS 100/50 [Concomitant]
     Indication: RESPIRATORY DISORDER
     Dosage: UNK
     Dates: start: 20030101, end: 20040101
  15. YASMIN [Suspect]
     Indication: MENSTRUATION IRREGULAR
  16. ALBUTEROL SULFATE AUTOHALER [Concomitant]
     Indication: RESPIRATORY DISORDER
     Dosage: UNK
     Dates: start: 20030101, end: 20040101
  17. METAMUCIL-2 [Concomitant]
     Indication: PROCTALGIA

REACTIONS (5)
  - INJURY [None]
  - CHOLELITHIASIS [None]
  - ABDOMINAL PAIN UPPER [None]
  - CHOLECYSTITIS ACUTE [None]
  - GALLBLADDER DISORDER [None]
